FAERS Safety Report 4655388-3 (Version None)
Quarter: 2005Q2

REPORT INFORMATION
  Report Type: 
  Country: None (occurrence: None)
  Receive Date: 20050505
  Receipt Date: 20050415
  Transmission Date: 20051028
  Serious: No
  Sender: FDA-Public Use
  Company Number: USA050495866

PATIENT
  Age: 8 Year
  Sex: 0

DRUGS (1)
  1. STRATTERA [Suspect]

REACTIONS (1)
  - HEPATIC FUNCTION ABNORMAL [None]
